FAERS Safety Report 10209607 (Version 2)
Quarter: 2014Q2

REPORT INFORMATION
  Report Type: Spontaneous
  Country: CA (occurrence: CA)
  Receive Date: 20140602
  Receipt Date: 20140602
  Transmission Date: 20141212
  Serious: Yes (Other)
  Sender: FDA-Public Use
  Company Number: CA-009507513-1308CAN003879

PATIENT
  Sex: Female

DRUGS (11)
  1. PUREGON [Suspect]
     Indication: OVULATION INDUCTION
     Dosage: FREQUENCY AS 3 CYCLES
     Route: 065
     Dates: start: 201302
  2. PUREGON [Suspect]
     Indication: INFERTILITY
     Dosage: FREQUENCY AS 3 CYCLES
     Route: 065
     Dates: start: 201303
  3. PUREGON [Suspect]
     Dosage: FREQUENCY AS 3 CYCLES
     Route: 065
     Dates: start: 201304
  4. FEMARA [Concomitant]
     Indication: INFERTILITY
     Route: 065
  5. OVIDREL [Concomitant]
     Indication: INFERTILITY
     Route: 048
  6. PROMETRIUM [Concomitant]
     Indication: INFERTILITY
     Route: 048
  7. LABETALOL HYDROCHLORIDE [Concomitant]
     Route: 065
  8. FLUOXETINE [Concomitant]
     Route: 065
  9. OMEGA-3 [Concomitant]
     Route: 065
  10. VITAMIN D (UNSPECIFIED) [Concomitant]
     Route: 065
  11. IRON (UNSPECIFIED) [Concomitant]
     Route: 065

REACTIONS (2)
  - Dermatitis [Recovered/Resolved]
  - Blepharitis [Recovered/Resolved]
